FAERS Safety Report 11642978 (Version 3)
Quarter: 2016Q1

REPORT INFORMATION
  Report Type: Other
  Country: JP (occurrence: JP)
  Receive Date: 20151016
  Receipt Date: 20160112
  Transmission Date: 20160525
  Serious: Yes (Hospitalization)
  Sender: FDA-Public Use
  Company Number: JP-2015-4223

PATIENT
  Age: 45 Year
  Sex: Female

DRUGS (1)
  1. NAVELBINE [Suspect]
     Active Substance: VINORELBINE TARTRATE
     Indication: BREAST CANCER
     Route: 041

REACTIONS (4)
  - Device related infection [Unknown]
  - Liver disorder [None]
  - Toxic shock syndrome staphylococcal [Unknown]
  - Encephalopathy [Unknown]
